FAERS Safety Report 5962095-3 (Version None)
Quarter: 2008Q4

REPORT INFORMATION
  Report Type: 
  Country: None (occurrence: None)
  Receive Date: 20081121
  Receipt Date: 20081112
  Transmission Date: 20090506
  Serious: Yes (Hospitalization)
  Sender: FDA-Public Use
  Company Number: PHHY2008GB23451

PATIENT
  Sex: Female

DRUGS (6)
  1. TEGRETOL [Suspect]
     Indication: EPILEPSY
     Dosage: 600 MG, BID
     Route: 048
  2. DIAZEPAM [Concomitant]
     Dosage: 5 MG, UNK
  3. LANSOPRAZOLE [Concomitant]
     Dosage: 30 MG, MANE
  4. FERROUS SULFATE [Concomitant]
     Dosage: 200 MG, TID
  5. LACTULOSE [Concomitant]
  6. ACETAMINOPHEN W/ CODEINE [Concomitant]
     Dosage: 30/500 1-2 TABLETS (4-6MG) PRN - MAXIMUM 8/24 HOURS

REACTIONS (3)
  - EPILEPSY [None]
  - HYPONATRAEMIA [None]
  - THERMAL BURN [None]
